FAERS Safety Report 8245619-5 (Version None)
Quarter: 2012Q1

REPORT INFORMATION
  Report Type: 
  Country: None (occurrence: None)
  Receive Date: 20120330
  Receipt Date: 20120322
  Transmission Date: 20120608
  Serious: Yes (Hospitalization)
  Sender: FDA-Public Use
  Company Number: US-BIOGENIDEC-2012BI010656

PATIENT
  Sex: Male

DRUGS (4)
  1. TYSABRI [Suspect]
     Indication: MULTIPLE SCLEROSIS
     Route: 042
  2. AVONEX [Concomitant]
     Route: 030
  3. AVONEX [Concomitant]
     Indication: MULTIPLE SCLEROSIS
     Route: 030
  4. TYSABRI [Suspect]
     Route: 042
     Dates: start: 20071009

REACTIONS (4)
  - RENAL DISORDER [None]
  - BLOOD COUNT ABNORMAL [None]
  - CYSTITIS [None]
  - CARDIAC DISORDER [None]
